FAERS Safety Report 16920223 (Version 4)
Quarter: 2020Q4

REPORT INFORMATION
  Report Type: Spontaneous
  Country: GB (occurrence: GB)
  Receive Date: 20191015
  Receipt Date: 20201015
  Transmission Date: 20210113
  Serious: Yes (Life-Threatening, Hospitalization, Other)
  Sender: FDA-Public Use
  Company Number: NVSC2019GB000713

PATIENT
  Age: 12 Year
  Sex: Male

DRUGS (2)
  1. IMATINIB. [Suspect]
     Active Substance: IMATINIB MESYLATE
     Indication: GRAFT VERSUS HOST DISEASE IN GASTROINTESTINAL TRACT
     Dosage: UNK
     Route: 065
     Dates: start: 201710
  2. CEFUROXIME. [Concomitant]
     Active Substance: CEFUROXIME
     Indication: PRODUCT USED FOR UNKNOWN INDICATION
     Dosage: UNK
     Route: 065

REACTIONS (10)
  - Dyspnoea [Unknown]
  - Tachypnoea [Recovered/Resolved]
  - Hepatomegaly [Unknown]
  - Vomiting [Recovered/Resolved]
  - Pericardial effusion [Recovered/Resolved]
  - Decreased appetite [Recovered/Resolved]
  - Product use in unapproved indication [Unknown]
  - Chest pain [Recovered/Resolved]
  - Respiratory failure [Recovered/Resolved]
  - Productive cough [Recovered/Resolved]
